FAERS Safety Report 17948158 (Version 1)
Quarter: 2020Q2

REPORT INFORMATION
  Report Type: Spontaneous
  Country: US (occurrence: US)
  Receive Date: 20200626
  Receipt Date: 20200626
  Transmission Date: 20200714
  Serious: Yes (Hospitalization)
  Sender: FDA-Public Use
  Company Number: None

PATIENT
  Age: 80 Year
  Sex: Male

DRUGS (1)
  1. LISINOPRIL (LISINOPRIL 5MG TAB) [Suspect]
     Active Substance: LISINOPRIL
     Indication: HYPERTENSION
     Route: 048
     Dates: start: 20000512, end: 20200616

REACTIONS (4)
  - Hypotension [None]
  - Renal failure [None]
  - Hyperkalaemia [None]
  - Renal tubular necrosis [None]

NARRATIVE: CASE EVENT DATE: 20200612
